FAERS Safety Report 10676471 (Version 1)
Quarter: 2014Q4

REPORT INFORMATION
  Report Type: Spontaneous
  Country: US (occurrence: None)
  Receive Date: 20141223
  Receipt Date: 20141223
  Transmission Date: 20150529
  Serious: Yes (Other)
  Sender: FDA-Public Use
  Company Number: None

PATIENT
  Age: 57 Year
  Sex: Male
  Weight: 77.11 kg

DRUGS (3)
  1. BUPROPION XL 300 MG ACTAVIS [Suspect]
     Active Substance: BUPROPION
     Indication: AGORAPHOBIA
     Dosage: 1 PILL, ONCE DAILY TAKEN BY MOUTH
     Route: 048
     Dates: start: 20140630, end: 20140930
  2. BUPROPION XL 300 MG ACTAVIS [Suspect]
     Active Substance: BUPROPION
     Indication: DEPRESSION
     Dosage: 1 PILL, ONCE DAILY TAKEN BY MOUTH
     Route: 048
     Dates: start: 20140630, end: 20140930
  3. BUPROPION XL 300 MG ACTAVIS [Suspect]
     Active Substance: BUPROPION
     Indication: ANXIETY
     Dosage: 1 PILL, ONCE DAILY TAKEN BY MOUTH
     Route: 048
     Dates: start: 20140630, end: 20140930

REACTIONS (5)
  - Product quality issue [None]
  - Anger [None]
  - Product substitution issue [None]
  - Anxiety [None]
  - Activities of daily living impaired [None]
